FAERS Safety Report 7199358-2 (Version None)
Quarter: 2010Q4

REPORT INFORMATION
  Report Type: 
  Country: None (occurrence: None)
  Receive Date: 20101228
  Receipt Date: 20101216
  Transmission Date: 20110411
  Serious: Yes (Death, Other)
  Sender: FDA-Public Use
  Company Number: CH-BRISTOL-MYERS SQUIBB COMPANY-15440753

PATIENT
  Age: 19 Year
  Sex: Male

DRUGS (6)
  1. CYCLOPHOSPHAMIDE [Suspect]
  2. ETOPOSIDE [Suspect]
  3. CYTARABINE [Suspect]
     Indication: B PRECURSOR TYPE ACUTE LEUKAEMIA
  4. CLOFARABINE [Suspect]
     Indication: B PRECURSOR TYPE ACUTE LEUKAEMIA
  5. TRIMETHOPRIM + SULFAMETHOXAZOLE [Suspect]
     Indication: PROPHYLAXIS
  6. ANTI-THYMOCYTE GLOBULIN NOS [Suspect]

REACTIONS (5)
  - BRONCHOPULMONARY ASPERGILLOSIS [None]
  - GRAFT VERSUS HOST DISEASE [None]
  - PANCYTOPENIA [None]
  - PNEUMONIA CYTOMEGALOVIRAL [None]
  - TOXOPLASMOSIS [None]
